FAERS Safety Report 4618049-2 (Version None)
Quarter: 2005Q1

REPORT INFORMATION
  Report Type: 
  Country: None (occurrence: None)
  Receive Date: 20050322
  Receipt Date: 20050307
  Transmission Date: 20050727
  Serious: Yes (Death)
  Sender: FDA-Public Use
  Company Number: 2005041884

PATIENT
  Age: 70 Year
  Sex: Female

DRUGS (2)
  1. VORICONAZOLE (VORICONAZOLE) [Suspect]
     Indication: ZYGOMYCOSIS
     Dosage: INTRAVENOUS
     Route: 042
  2. AMPHOTERICIN B [Suspect]
     Dosage: INTRAVENOUS,  TOPICAL
     Route: 042

REACTIONS (1)
  - DEATH [None]
